FAERS Safety Report 4562705-1 (Version None)
Quarter: 2005Q1

REPORT INFORMATION
  Report Type: 
  Country: None (occurrence: None)
  Receive Date: 20050124
  Receipt Date: 20050110
  Transmission Date: 20050727
  Serious: Yes (Hospitalization)
  Sender: FDA-Public Use
  Company Number: 200500337

PATIENT
  Sex: Male

DRUGS (1)
  1. TAZORAC [Suspect]
     Indication: DRUG EXPOSURE DURING PREGNANCY
     Route: 064
     Dates: start: 20010101, end: 20010923

REACTIONS (5)
  - BRADYCARDIA NEONATAL [None]
  - CAESAREAN SECTION [None]
  - CYANOSIS NEONATAL [None]
  - DRUG EXPOSURE DURING PREGNANCY [None]
  - LARGE FOR DATES BABY [None]
